FAERS Safety Report 17347301 (Version 1)
Quarter: 2020Q1

REPORT INFORMATION
  Report Type: Spontaneous
  Country: FR (occurrence: FR)
  Receive Date: 20200129
  Receipt Date: 20200129
  Transmission Date: 20200409
  Serious: Yes (Death, Other)
  Sender: FDA-Public Use
  Company Number: FR-AMGEN-FRASP2020010799

PATIENT

DRUGS (1)
  1. CINACALCET HCL [Suspect]
     Active Substance: CINACALCET HYDROCHLORIDE
     Indication: PRODUCT USED FOR UNKNOWN INDICATION
     Dosage: UNK
     Route: 065

REACTIONS (6)
  - Hypercalcaemia [Unknown]
  - Fibroblast growth factor 23 increased [Unknown]
  - Hyperphosphataemia [Unknown]
  - Death [Fatal]
  - Blood parathyroid hormone increased [Unknown]
  - Vascular calcification [Unknown]
